FAERS Safety Report 14674347 (Version 2)
Quarter: 2018Q2

REPORT INFORMATION
  Report Type: Spontaneous
  Country: US (occurrence: US)
  Receive Date: 20180323
  Receipt Date: 20180531
  Transmission Date: 20180711
  Serious: No
  Sender: FDA-Public Use
  Company Number: US-GLAXOSMITHKLINE-US2018045410

PATIENT
  Age: 63 Year
  Sex: Female
  Weight: 50.79 kg

DRUGS (1)
  1. EQUATE NICOTINE [Suspect]
     Active Substance: NICOTINE
     Indication: PRODUCT USED FOR UNKNOWN INDICATION
     Dosage: 14 MG, UNK
     Dates: start: 20180228, end: 20180310

REACTIONS (2)
  - Feeling jittery [Unknown]
  - Restlessness [Unknown]

NARRATIVE: CASE EVENT DATE: 20180315
